FAERS Safety Report 6871449-2 (Version None)
Quarter: 2010Q3

REPORT INFORMATION
  Report Type: 
  Country: None (occurrence: None)
  Receive Date: 20100723
  Receipt Date: 20100709
  Transmission Date: 20110219
  Serious: Yes (Other)
  Sender: FDA-Public Use
  Company Number: US-BAYER-201024774NA

PATIENT
  Age: 58 Year
  Sex: Female

DRUGS (21)
  1. MAGNEVIST [Suspect]
     Indication: IMAGING PROCEDURE
     Dates: start: 20050526, end: 20050526
  2. OMNISCAN [Suspect]
     Indication: IMAGING PROCEDURE
  3. OPTIMARK [Suspect]
     Indication: IMAGING PROCEDURE
  4. MULTIHANCE [Suspect]
     Indication: IMAGING PROCEDURE
  5. PROHANCE [Suspect]
     Indication: IMAGING PROCEDURE
  6. UNKNOWN GBCA [Suspect]
     Indication: ANGIOGRAM
     Dates: start: 20031220, end: 20031220
  7. UNKNOWN GBCA [Suspect]
     Dates: start: 20060530, end: 20060530
  8. NEURONTIN [Concomitant]
     Dosage: 200 MG HS
  9. KLONOPIN [Concomitant]
  10. LEVOTHYROXINE SODIUM [Concomitant]
  11. MIDODRINE HYDROCHLORIDE [Concomitant]
  12. PLAVIX [Concomitant]
  13. EPOGEN [Concomitant]
     Dates: start: 19860101
  14. IRON SUPPLEMENTS [Concomitant]
  15. PHOSLO [Concomitant]
  16. STEROIDS [Concomitant]
     Dates: start: 19860101, end: 19960101
  17. NEPHROCAPS [Concomitant]
  18. COLCHICINE [Concomitant]
  19. RENAGEL [Concomitant]
  20. GABAPENTIN [Concomitant]
  21. ROBAXIN [Concomitant]

REACTIONS (17)
  - JOINT STIFFNESS [None]
  - LIVEDO RETICULARIS [None]
  - MOBILITY DECREASED [None]
  - MUSCULAR WEAKNESS [None]
  - NEPHROGENIC SYSTEMIC FIBROSIS [None]
  - PAIN IN EXTREMITY [None]
  - PEAU D'ORANGE [None]
  - PRURITUS [None]
  - SCAB [None]
  - SCAR [None]
  - SKIN BURNING SENSATION [None]
  - SKIN DISORDER [None]
  - SKIN FIBROSIS [None]
  - SKIN HYPERPIGMENTATION [None]
  - SKIN HYPERTROPHY [None]
  - SKIN INDURATION [None]
  - SKIN SWELLING [None]
